FAERS Safety Report 4527402-7 (Version None)
Quarter: 2004Q4

REPORT INFORMATION
  Report Type: 
  Country: None (occurrence: None)
  Receive Date: 20041215
  Receipt Date: 20041208
  Transmission Date: 20050328
  Serious: Yes (Hospitalization)
  Sender: FDA-Public Use
  Company Number: US-BRISTOL-MYERS SQUIBB COMPANY-12788667

PATIENT
  Age: 85 Year
  Sex: Male
  Weight: 82 kg

DRUGS (4)
  1. CETUXIMAB [Suspect]
     Indication: NON-SMALL CELL LUNG CANCER
     Dosage: 1ST DOSE 14-SEPT-04,WEEKLY FOR 17 WEEKS.LAST GIVEN 23-NOV-04 DOSE 461 MG-RECEIVED 8 DOSES.
     Route: 042
     Dates: start: 20041123, end: 20041123
  2. CARBOPLATIN [Suspect]
     Indication: NON-SMALL CELL LUNG CANCER
     Dosage: 1ST ON 14-SEPT-04,GIVEN AUC=2,WEEKLY FOR 7 WKS,THEN AUC=6 EVERY 3 WKS TWICE.LAST 26-OCT(221MG),HELD
     Route: 042
     Dates: start: 20041026, end: 20041026
  3. TAXOL [Suspect]
     Indication: NON-SMALL CELL LUNG CANCER
     Dosage: 1ST ON 14-SEPT-04,WEEKLY FOR 7 WKS,THEN 200MG/M2 EVERY 3 WKS TWICE.LAST 26-OCT(85MG).THERAPY HELD
     Route: 042
     Dates: start: 20041026, end: 20041026
  4. RADIATION THERAPY [Suspect]
     Indication: NON-SMALL CELL LUNG CANCER

REACTIONS (1)
  - PNEUMONITIS [None]
